FAERS Safety Report 5336623-5 (Version None)
Quarter: 2007Q2

REPORT INFORMATION
  Report Type: 
  Country: None (occurrence: None)
  Receive Date: 20070524
  Receipt Date: 20070510
  Transmission Date: 20071010
  Serious: Yes (Hospitalization)
  Sender: FDA-Public Use
  Company Number: MEDI-0005157

PATIENT
  Age: 10 Month

DRUGS (2)
  1. SYNAGIS [Suspect]
     Indication: ANTIVIRAL PROPHYLAXIS
     Dosage: SEE IMAGE
     Route: 030
     Dates: start: 20051007, end: 20051110
  2. SYNAGIS [Suspect]
     Indication: ANTIVIRAL PROPHYLAXIS
     Dosage: SEE IMAGE
     Route: 030
     Dates: start: 20051007

REACTIONS (6)
  - FEEDING DISORDER [None]
  - ILEUS [None]
  - INTESTINAL OBSTRUCTION [None]
  - SEPSIS [None]
  - STAPHYLOCOCCAL INFECTION [None]
  - VIRAL INFECTION [None]
